FAERS Safety Report 4800833-3 (Version None)
Quarter: 2005Q4

REPORT INFORMATION
  Report Type: 
  Country: None (occurrence: None)
  Receive Date: 20051013
  Receipt Date: 20051013
  Transmission Date: 20060501
  Serious: Yes (Other)
  Sender: FDA-Public Use
  Company Number: None

PATIENT
  Age: 67 Year
  Sex: Male

DRUGS (11)
  1. ARTESUNATE [Suspect]
     Indication: MALARIA PROPHYLAXIS
     Dosage: 50 MG QD
     Dates: start: 20041122, end: 20041126
  2. COSPOPT [Concomitant]
  3. ALPHAGAN [Concomitant]
  4. AVANDIA [Concomitant]
  5. LOTREL [Concomitant]
  6. PRANDIN [Concomitant]
  7. PRILOSEC [Concomitant]
  8. ASPIRIN [Concomitant]
  9. METFORMIN [Concomitant]
  10. AMARYL [Concomitant]
  11. NORVASC [Concomitant]

REACTIONS (6)
  - HEPATIC TRAUMA [None]
  - JAUNDICE [None]
  - LIVER FUNCTION TEST ABNORMAL [None]
  - NAUSEA [None]
  - PYREXIA [None]
  - VOMITING [None]
